FAERS Safety Report 23284495 (Version 2)
Quarter: 2023Q4

REPORT INFORMATION
  Report Type: Spontaneous
  Country: US (occurrence: US)
  Receive Date: 20231211
  Receipt Date: 20231222
  Transmission Date: 20240109
  Serious: Yes (Other)
  Sender: FDA-Public Use
  Company Number: US-AstraZeneca-CH-00522075A

PATIENT
  Sex: Female

DRUGS (2)
  1. SOLIRIS [Suspect]
     Active Substance: ECULIZUMAB
     Indication: Neuromyelitis optica spectrum disorder
     Dosage: UNK, Q2W
     Route: 042
     Dates: start: 201101
  2. SOLIRIS [Suspect]
     Active Substance: ECULIZUMAB
     Dosage: 1200 MILLIGRAM, Q2W
     Route: 042
     Dates: start: 201101

REACTIONS (10)
  - Blindness unilateral [Not Recovered/Not Resolved]
  - Neuromyelitis optica spectrum disorder [Unknown]
  - Optic nerve cupping [Unknown]
  - Skin necrosis [Unknown]
  - Fear [Unknown]
  - Anxiety [Unknown]
  - COVID-19 [Unknown]
  - Herpes zoster [Unknown]
  - Visual impairment [Unknown]
  - Colour blindness [Unknown]

NARRATIVE: CASE EVENT DATE: 20230101
